FAERS Safety Report 7413614-1 (Version None)
Quarter: 2011Q2

REPORT INFORMATION
  Report Type: 
  Country: None (occurrence: None)
  Receive Date: 20110413
  Receipt Date: 20110408
  Transmission Date: 20111010
  Serious: Yes (Death, Hospitalization, Other)
  Sender: FDA-Public Use
  Company Number: FR-GENZYME-THYM-1002389

PATIENT
  Sex: Female

DRUGS (7)
  1. THYMOGLOBULIN [Suspect]
     Indication: BONE MARROW CONDITIONING REGIMEN
     Dosage: 200 MG, UNK
     Route: 042
     Dates: start: 20101111, end: 20101112
  2. ENDOXAN [Suspect]
     Indication: BONE MARROW CONDITIONING REGIMEN
     Dosage: 1360 MG/DAY, QD
     Route: 042
     Dates: start: 20101113, end: 20101115
  3. FLUDARA [Suspect]
     Indication: BONE MARROW CONDITIONING REGIMEN
     Dosage: 54 MG/DAY, QD
     Route: 042
     Dates: start: 20101111, end: 20101113
  4. METHOTREXATE [Suspect]
     Indication: BONE MARROW CONDITIONING REGIMEN
     Dosage: UNK
     Route: 042
     Dates: start: 20101118, end: 20101128
  5. SANDIMMUNE [Suspect]
     Indication: BONE MARROW CONDITIONING REGIMEN
     Dosage: 240 MG/DAY, QD
     Route: 042
     Dates: start: 20101115, end: 20101119
  6. REVLIMID [Suspect]
     Indication: BONE MARROW CONDITIONING REGIMEN
     Dosage: 10 MG, QD
  7. SOLU-MEDROL [Concomitant]
     Indication: PROPHYLAXIS AGAINST GRAFT VERSUS HOST DISEASE
     Dosage: UNK
     Dates: start: 20101111

REACTIONS (22)
  - CYTOLYTIC HEPATITIS [None]
  - MULTI-ORGAN DISORDER [None]
  - HYPERTHERMIA [None]
  - BK VIRUS INFECTION [None]
  - RENAL FAILURE ACUTE [None]
  - EPILEPSY [None]
  - HYPOKALAEMIA [None]
  - ANAEMIA HAEMOLYTIC AUTOIMMUNE [None]
  - APNOEA [None]
  - CONFUSIONAL STATE [None]
  - APLASIA [None]
  - RESPIRATORY DISTRESS [None]
  - HEMIPARESIS [None]
  - HEPATOMEGALY [None]
  - URINARY RETENTION [None]
  - HYPOCALCAEMIA [None]
  - NEUROLOGICAL DECOMPENSATION [None]
  - MYOCLONUS [None]
  - HYPOPHOSPHATAEMIA [None]
  - FEBRILE BONE MARROW APLASIA [None]
  - HYPOMAGNESAEMIA [None]
  - LUNG DISORDER [None]
